FAERS Safety Report 4751480-3 (Version None)
Quarter: 2005Q3

REPORT INFORMATION
  Report Type: 
  Country: None (occurrence: None)
  Receive Date: 20050824
  Receipt Date: 20050816
  Transmission Date: 20060218
  Serious: Yes (Other)
  Sender: FDA-Public Use
  Company Number: US-BRISTOL-MYERS SQUIBB COMPANY-13079884

PATIENT
  Age: 8 Year
  Sex: Male
  Weight: 28 kg

DRUGS (3)
  1. ABILIFY [Suspect]
     Indication: BIPOLAR DISORDER
     Route: 048
     Dates: start: 20050802
  2. SEROQUEL [Concomitant]
     Indication: BIPOLAR DISORDER
  3. MELATONIN [Concomitant]

REACTIONS (5)
  - DROOLING [None]
  - DYSTONIA [None]
  - INAPPROPRIATE AFFECT [None]
  - MYDRIASIS [None]
  - TREMOR [None]
